FAERS Safety Report 4966403-1 (Version None)
Quarter: 2006Q2

REPORT INFORMATION
  Report Type: 
  Country: None (occurrence: None)
  Receive Date: 20060407
  Receipt Date: 20060315
  Transmission Date: 20061013
  Serious: Yes (Hospitalization)
  Sender: FDA-Public Use
  Company Number: FI-ROCHE-440332

PATIENT
  Age: 52 Year
  Sex: Female

DRUGS (6)
  1. CAPECITABINE [Suspect]
     Indication: BREAST CANCER
     Dosage: DOSE GIVEN ON DAYS 1 TO 14 EVERY THREE WEEKS
     Route: 048
     Dates: start: 20060306
  2. DOCETAXEL [Suspect]
     Indication: BREAST CANCER
     Dosage: FREQUENCY AS PER PROTOCOL
     Route: 042
     Dates: start: 20060306
  3. DEXAMETHASONE TAB [Concomitant]
     Dates: start: 20060305, end: 20060308
  4. OXAZEPAM [Concomitant]
  5. LORAZEPAM [Concomitant]
  6. ZOPICLONE [Concomitant]

REACTIONS (3)
  - ANXIETY [None]
  - PANIC DISORDER [None]
  - SLEEP DISORDER [None]
